FAERS Safety Report 21624262 (Version 2)
Quarter: 2022Q4

REPORT INFORMATION
  Report Type: Spontaneous
  Country: JP (occurrence: JP)
  Receive Date: 20221121
  Receipt Date: 20221208
  Transmission Date: 20230112
  Serious: Yes (Death, Hospitalization, Other)
  Sender: FDA-Public Use
  Company Number: JP-ONO-2022JP030405

PATIENT

DRUGS (3)
  1. ONGENTYS [Suspect]
     Active Substance: OPICAPONE
     Indication: Parkinson^s disease
     Dosage: UNK, UNKNOWN
     Route: 048
  2. ONGENTYS [Suspect]
     Active Substance: OPICAPONE
     Dosage: UNKNOWN
     Route: 048
  3. CARBIDOPA\LEVODOPA [Concomitant]
     Active Substance: CARBIDOPA\LEVODOPA
     Dosage: UNKNOWN
     Route: 048

REACTIONS (2)
  - Neuroleptic malignant syndrome [Fatal]
  - Pneumonia [Unknown]

NARRATIVE: CASE EVENT DATE: 20220701
